FAERS Safety Report 15355775 (Version 1)
Quarter: 2018Q3

REPORT INFORMATION
  Report Type: Spontaneous
  Country: US (occurrence: US)
  Receive Date: 20180906
  Receipt Date: 20180906
  Transmission Date: 20181010
  Serious: Yes (Other)
  Sender: FDA-Public Use
  Company Number: US-BAYER-2018-166962

PATIENT
  Sex: Female

DRUGS (1)
  1. MAGNEVIST [Suspect]
     Active Substance: GADOPENTETATE DIMEGLUMINE
     Dosage: UNK UNK, ONCE

REACTIONS (9)
  - Gadolinium deposition disease [None]
  - Fibrosis [None]
  - Pain [None]
  - Injury [None]
  - Anxiety [None]
  - Skin fibrosis [None]
  - Adverse reaction [None]
  - Emotional distress [None]
  - Anhedonia [None]
